FAERS Safety Report 16986600 (Version 1)
Quarter: 2019Q4

REPORT INFORMATION
  Report Type: Spontaneous
  Country: US (occurrence: US)
  Receive Date: 20191101
  Receipt Date: 20191101
  Transmission Date: 20200122
  Serious: No
  Sender: FDA-Public Use
  Company Number: US-JAZZ-2019-US-011322

PATIENT
  Sex: Female

DRUGS (3)
  1. SUNOSI [Suspect]
     Active Substance: SOLRIAMFETOL
     Indication: PRODUCT USED FOR UNKNOWN INDICATION
     Dosage: 150 MG
     Dates: start: 201907
  2. SUNOSI [Suspect]
     Active Substance: SOLRIAMFETOL
     Dosage: 75 MG FOR ONE DAY
     Dates: start: 201907, end: 201907
  3. SUNOSI [Suspect]
     Active Substance: SOLRIAMFETOL
     Dosage: 37.5 MG FOR TWO DAYS
     Dates: start: 201907, end: 201907

REACTIONS (5)
  - Dizziness [Not Recovered/Not Resolved]
  - Drug titration error [Unknown]
  - Disturbance in attention [Not Recovered/Not Resolved]
  - Chest pain [Not Recovered/Not Resolved]
  - Vision blurred [Not Recovered/Not Resolved]

NARRATIVE: CASE EVENT DATE: 2019
